FAERS Safety Report 8173327-8 (Version None)
Quarter: 2012Q1

REPORT INFORMATION
  Report Type: 
  Country: None (occurrence: None)
  Receive Date: 20120104
  Receipt Date: 20111101
  Transmission Date: 20120608
  Serious: No
  Sender: FDA-Public Use
  Company Number: 2011HGS-002581

PATIENT
  Age: 25 Year
  Sex: Female
  Weight: 79.3795 kg

DRUGS (8)
  1. BENLYSTA [Suspect]
     Indication: SYSTEMIC LUPUS ERYTHEMATOSUS
     Dosage: 1 IN 2 WK, INTRAVENOUS DRIP
     Route: 041
     Dates: start: 20110921
  2. PLAQUENIL (HYDROCXYCHLOROQUINE SULFATE) (HYDROXYCHLOROQUINE SULFATE) [Concomitant]
  3. HUMALOG [Concomitant]
  4. ZANAFLEX (TIZANIDINE HYDROCHLORIDE) (TIZANIDINE HYDROCHLORIDE) [Concomitant]
  5. LANTUS (INSULIN GLARGINE) (INSULIN GLARGINE) [Concomitant]
  6. VALIUM [Concomitant]
  7. PREDNISONE [Concomitant]
  8. BUSPAR (BUSPIRONE HYDROCHLORIDE) (BUSPIRONE HYDROCHLORIDE) [Concomitant]

REACTIONS (8)
  - CHEST PAIN [None]
  - PAIN IN EXTREMITY [None]
  - ANGER [None]
  - PRODUCTIVE COUGH [None]
  - MOOD ALTERED [None]
  - URINARY TRACT INFECTION [None]
  - DIZZINESS [None]
  - DYSPNOEA [None]
